FAERS Safety Report 6445017-0 (Version None)
Quarter: 2009Q4

REPORT INFORMATION
  Report Type: 
  Country: None (occurrence: None)
  Receive Date: 20091118
  Receipt Date: 20091029
  Transmission Date: 20100525
  Serious: Yes (Hospitalization)
  Sender: FDA-Public Use
  Company Number: US-MERCK-0911SWE00008

PATIENT
  Age: 63 Year
  Sex: Male

DRUGS (1)
  1. SIMAVASTATIN [Suspect]
     Route: 048

REACTIONS (1)
  - LIVER DISORDER [None]
